FAERS Safety Report 7986499-2 (Version None)
Quarter: 2011Q4

REPORT INFORMATION
  Report Type: 
  Country: None (occurrence: None)
  Receive Date: 20111216
  Receipt Date: 20110201
  Transmission Date: 20120403
  Serious: No
  Sender: FDA-Public Use
  Company Number: US-BRISTOL-MYERS SQUIBB COMPANY-15522451

PATIENT
  Age: 4 Decade
  Sex: Female

DRUGS (1)
  1. ABILIFY [Suspect]
     Dosage: PATIENT ON MEDICATION WAS WITHIN LAST 30 DAYS

REACTIONS (2)
  - INSOMNIA [None]
  - HYPOMANIA [None]
